FAERS Safety Report 5693221-1 (Version None)
Quarter: 2008Q2

REPORT INFORMATION
  Report Type: 
  Country: None (occurrence: None)
  Receive Date: 20080403
  Receipt Date: 20080328
  Transmission Date: 20081010
  Serious: Yes (Other)
  Sender: FDA-Public Use
  Company Number: PHHY2008GB03965

PATIENT
  Sex: Female

DRUGS (2)
  1. RASILEZ [Suspect]
     Dosage: 150 MG, BID
  2. RASILEZ [Suspect]
     Dosage: 150 MG, QD

REACTIONS (4)
  - DRY SKIN [None]
  - JOINT EFFUSION [None]
  - JOINT SWELLING [None]
  - RASH [None]
